FAERS Safety Report 8309074-9 (Version None)
Quarter: 2012Q2

REPORT INFORMATION
  Report Type: 
  Country: None (occurrence: None)
  Receive Date: 20120424
  Receipt Date: 20120413
  Transmission Date: 20120825
  Serious: Yes (Hospitalization, Other)
  Sender: FDA-Public Use
  Company Number: NL-ROCHE-712042

PATIENT
  Sex: Female
  Weight: 64.5 kg

DRUGS (10)
  1. OXYCONTIN [Concomitant]
     Indication: PAIN
     Route: 048
  2. THYROX [Concomitant]
     Indication: HYPOTHYROIDISM
     Route: 048
  3. OXYCONTIN [Concomitant]
     Route: 048
  4. CYCLOPHOSPHAMIDE [Suspect]
     Indication: B-CELL LYMPHOMA
     Dosage: LAST DOSE PRIOR TO SAE 17 JUNE 2010
     Route: 042
  5. OXYCONTIN [Concomitant]
     Route: 048
  6. PREDNISONE TAB [Suspect]
     Indication: B-CELL LYMPHOMA
     Dosage: LST DOSE PRIOR TO SAE: 24 JUNE 2010
     Route: 048
  7. FILGRASTIM [Suspect]
     Indication: B-CELL LYMPHOMA
     Dosage: LAST DOSE PRIOR TO SAE 18 JUNE 2010
     Route: 058
  8. DOXORUBICIN HCL [Suspect]
     Indication: B-CELL LYMPHOMA
     Dosage: LAST DOSE PRIOR TO SAE 17 JUNE 2010
     Route: 042
  9. MABTHERA [Suspect]
     Indication: B-CELL LYMPHOMA
     Dosage: LAST DOSE PRIOR TO SAE 17 JUNE 2010
     Route: 042
  10. VINCRISTINE [Suspect]
     Indication: B-CELL LYMPHOMA
     Dosage: LAST DOSE PRIOR TO SAE 17 JUNE 2010
     Route: 042

REACTIONS (2)
  - MALAISE [None]
  - NEUTROPHIL COUNT DECREASED [None]
